FAERS Safety Report 5355996-0 (Version None)
Quarter: 2007Q2

REPORT INFORMATION
  Report Type: 
  Country: None (occurrence: None)
  Receive Date: 20070613
  Receipt Date: 20070605
  Transmission Date: 20071010
  Serious: Yes (Hospitalization, Other)
  Sender: FDA-Public Use
  Company Number: US-GILEAD-2007-0011697

PATIENT
  Sex: Male
  Weight: 79.904 kg

DRUGS (14)
  1. TRUVADA [Suspect]
     Indication: HIV INFECTION
     Route: 048
     Dates: start: 20050526, end: 20070325
  2. ALDOSTERONE [Suspect]
     Indication: HYPOKALAEMIA
     Route: 048
  3. ATAZANAVIR SULFATE [Concomitant]
     Indication: HIV INFECTION
     Route: 048
     Dates: start: 20050501
  4. VIREAD [Concomitant]
     Indication: HIV INFECTION
     Route: 048
     Dates: start: 20050526, end: 20070325
  5. ABACAVIR [Concomitant]
     Indication: HIV INFECTION
     Route: 048
     Dates: start: 20050526, end: 20070325
  6. NORVIR [Concomitant]
     Indication: HIV INFECTION
     Route: 048
     Dates: start: 20050526, end: 20070305
  7. ALDACTONE [Concomitant]
     Indication: HYPOKALAEMIA
     Route: 048
     Dates: start: 20061023, end: 20070207
  8. ALDACTONE [Concomitant]
     Route: 048
     Dates: end: 20070305
  9. ATENOLOL [Concomitant]
     Indication: HYPERTENSION
     Route: 048
     Dates: end: 20070305
  10. HYDRALAZINE HCL [Concomitant]
     Indication: HYPERTENSION
     Route: 048
     Dates: end: 20070305
  11. HYDROCHLOROTHIAZIDE [Concomitant]
     Indication: HYPERTENSION
     Route: 048
     Dates: end: 20070305
  12. WARFARIN SODIUM [Concomitant]
     Indication: THROMBOSIS PROPHYLAXIS
  13. PROCARDIA XL [Concomitant]
     Indication: THROMBOSIS PROPHYLAXIS
  14. POTASSIUM ACETATE [Concomitant]
     Indication: HYPOKALAEMIA
     Route: 048
     Dates: end: 20070207

REACTIONS (5)
  - ANAEMIA [None]
  - BLOOD POTASSIUM INCREASED [None]
  - COUGH [None]
  - PRESYNCOPE [None]
  - RENAL FAILURE ACUTE [None]
